FAERS Safety Report 5847712-0 (Version None)
Quarter: 2008Q3

REPORT INFORMATION
  Report Type: 
  Country: None (occurrence: None)
  Receive Date: 20080818
  Receipt Date: 20080807
  Transmission Date: 20090109
  Serious: Yes (Hospitalization)
  Sender: FDA-Public Use
  Company Number: US-ROCHE-580074

PATIENT
  Sex: Female
  Weight: 113.4 kg

DRUGS (1)
  1. CAPECITABINE [Suspect]
     Indication: COLORECTAL CANCER
     Dosage: HAD COMPLETED ONE CYCLE
     Route: 048

REACTIONS (1)
  - GASTROINTESTINAL INFLAMMATION [None]
